FAERS Safety Report 18537759 (Version 1)
Quarter: 2020Q4

REPORT INFORMATION
  Report Type: Other
  Country: CA (occurrence: CA)
  Receive Date: 20201124
  Receipt Date: 20201124
  Transmission Date: 20210114
  Serious: Yes (Life-Threatening, Other)
  Sender: FDA-Public Use
  Company Number: CA-APOTEX-2020AP021997

PATIENT
  Age: 43 Year
  Sex: Male
  Weight: 68 kg

DRUGS (2)
  1. ROBAXACET [Concomitant]
     Active Substance: ACETAMINOPHEN\METHOCARBAMOL
     Indication: PRODUCT USED FOR UNKNOWN INDICATION
     Dosage: UNK
     Route: 065
  2. GABAPENTIN. [Suspect]
     Active Substance: GABAPENTIN
     Indication: PAIN
     Dosage: 3600 MILLIGRAM, QD
     Route: 048

REACTIONS (10)
  - Memory impairment [Recovered/Resolved]
  - Withdrawal syndrome [Recovered/Resolved]
  - Loss of consciousness [Recovered/Resolved]
  - Mental impairment [Recovered/Resolved]
  - Feeling abnormal [Recovered/Resolved]
  - Depressed level of consciousness [Recovered/Resolved]
  - Cognitive disorder [Recovered/Resolved]
  - Impulsive behaviour [Recovered/Resolved]
  - Suicidal behaviour [Recovered/Resolved]
  - Stupor [Recovered/Resolved]
